FAERS Safety Report 9402318 (Version 1)
Quarter: 2013Q3

REPORT INFORMATION
  Report Type: Report from Study
  Country: US (occurrence: US)
  Receive Date: 20130716
  Receipt Date: 20130716
  Transmission Date: 20140515
  Serious: Yes (Life-Threatening, Other)
  Sender: FDA-Public Use
  Company Number: US-009507513-1307USA006406

PATIENT
  Sex: 0

DRUGS (5)
  1. TEMOZOLOMIDE [Suspect]
     Indication: GLIOBLASTOMA
     Dosage: PART A: 75 MG/M2, QD
     Route: 048
  2. TEMOZOLOMIDE [Suspect]
     Dosage: PART B: 200 MG/M2 ON DAYS 1-5 OF A 28 DAY CYCLE
     Route: 048
  3. CARMUSTINE [Suspect]
     Indication: GLIOBLASTOMA
  4. BEVACIZUMAB [Suspect]
     Indication: GLIOBLASTOMA
     Dosage: PART A: 10 MG/KG, EVERY TWO WEEKS STARTED ATLEAST 28 DAYS POST OPERATIVELY
  5. BEVACIZUMAB [Suspect]
     Dosage: PART B: EVERY TWO WEEKS (DAY 1 AND 15)

REACTIONS (1)
  - Brain oedema [Unknown]
